FAERS Safety Report 8977769 (Version 4)
Quarter: 2014Q2

REPORT INFORMATION
  Report Type: Report from Study
  Country: CA (occurrence: CA)
  Receive Date: 20121220
  Receipt Date: 20140408
  Transmission Date: 20141212
  Serious: Yes (Hospitalization)
  Sender: FDA-Public Use
  Company Number: CA-ROCHE-1171872

PATIENT
  Age: 44 Year
  Sex: Male
  Weight: 100 kg

DRUGS (3)
  1. OMALIZUMAB [Suspect]
     Indication: ASTHMA
     Route: 058
     Dates: start: 20071106
  2. OMALIZUMAB [Suspect]
     Route: 058
     Dates: start: 20140228
  3. OMALIZUMAB [Suspect]
     Route: 058
     Dates: start: 20140402

REACTIONS (8)
  - Pneumonia [Recovered/Resolved]
  - Sinusitis [Recovering/Resolving]
  - Hypersensitivity [Not Recovered/Not Resolved]
  - Headache [Recovering/Resolving]
  - Dyspnoea exertional [Unknown]
  - Pharyngitis [Unknown]
  - Blood pressure systolic increased [Unknown]
  - Weight decreased [Unknown]
